FAERS Safety Report 4803435-8 (Version None)
Quarter: 2005Q4

REPORT INFORMATION
  Report Type: 
  Country: None (occurrence: None)
  Receive Date: 20051014
  Receipt Date: 20051003
  Transmission Date: 20060501
  Serious: Yes (Hospitalization, Other)
  Sender: FDA-Public Use
  Company Number: HQWYE601522SEP05

PATIENT
  Age: 44 Year
  Sex: Male

DRUGS (9)
  1. RAPAMUNE [Suspect]
     Indication: PROPHYLAXIS AGAINST TRANSPLANT REJECTION
     Dosage: 3 MG 1X PER 1 DAY, ORAL
     Route: 048
     Dates: start: 20050802
  2. PREDNISONE [Concomitant]
  3. MYCOPHENOLATE MOFETIL (MYCOPHENOLATE MOFETIL) [Concomitant]
  4. BACTRIM [Concomitant]
  5. ADALAT [Concomitant]
  6. PRAZOSIN GITS [Concomitant]
  7. SIMVASTTIN (SIMVASTATIN) [Concomitant]
  8. LOSEC (OMEPRAZOLE) [Concomitant]
  9. METOPROLOL TARTRATE [Concomitant]

REACTIONS (4)
  - ARTERIOGRAM RENAL ABNORMAL [None]
  - DRUG INEFFECTIVE [None]
  - KIDNEY TRANSPLANT REJECTION [None]
  - TUBULOINTERSTITIAL NEPHRITIS [None]
